FAERS Safety Report 5016041-X (Version None)
Quarter: 2006Q2

REPORT INFORMATION
  Report Type: 
  Country: None (occurrence: None)
  Receive Date: 20060531
  Receipt Date: 20060531
  Transmission Date: 20061013
  Serious: Yes (Other)
  Sender: FDA-Public Use
  Company Number: None

PATIENT
  Age: 66 Year
  Sex: Male
  Weight: 127.0072 kg

DRUGS (1)
  1. BIAXIN XL [Suspect]
     Indication: BRONCHITIS
     Dosage: 2 TABLETS  ONCE A DAY PO
     Route: 048
     Dates: start: 20060525, end: 20060526

REACTIONS (5)
  - FLASHBACK [None]
  - HALLUCINATION [None]
  - MENTAL DISORDER [None]
  - NIGHTMARE [None]
  - THINKING ABNORMAL [None]
